FAERS Safety Report 18542328 (Version 3)
Quarter: 2024Q2

REPORT INFORMATION
  Report Type: Other
  Country: CA (occurrence: CA)
  Receive Date: 20201125
  Receipt Date: 20240628
  Transmission Date: 20240716
  Serious: Yes (Hospitalization, Other)
  Sender: FDA-Public Use
  Company Number: CA-APOTEX-2019AP017377

PATIENT
  Age: 66 Year
  Sex: Male

DRUGS (35)
  1. GEMCITABINE [Suspect]
     Active Substance: GEMCITABINE
     Indication: Pancreatic carcinoma
     Dosage: 2001.9 MG, UNK, 3 EVERY 28 DAYS, INTRAVENOUS DRIP
     Route: 041
  2. GEMCITABINE [Suspect]
     Active Substance: GEMCITABINE
     Dosage: 1568 MILLIGRAM; 1 EVERY 4 WEEKS
     Route: 042
  3. GEMCITABINE [Suspect]
     Active Substance: GEMCITABINE
     Dosage: 2001.9 MILLIGRAM; CYCLICAL
     Route: 041
  4. GEMCITABINE [Suspect]
     Active Substance: GEMCITABINE
     Dosage: 1568 MILLIGRAM; CYCLICAL
     Route: 041
  5. PACLITAXEL [Suspect]
     Active Substance: PACLITAXEL
     Indication: Pancreatic carcinoma
     Dosage: 196 MILLIGRAM
     Route: 041
  6. ABRAXANE [Suspect]
     Active Substance: PACLITAXEL
     Indication: Pancreatic carcinoma
     Dosage: 250.24 MG, 3 EVERY 28 DAYS
     Route: 041
  7. ABRAXANE [Suspect]
     Active Substance: PACLITAXEL
     Dosage: 196 MILLIGRAM; 1 EVERY 4 WEEKS
     Route: 042
  8. ABRAXANE [Suspect]
     Active Substance: PACLITAXEL
     Dosage: 196 MILLIGRAM; 1 EVERY 4 WEEKS
     Route: 042
  9. ABRAXANE [Suspect]
     Active Substance: PACLITAXEL
     Dosage: 196 MILLIGRAM; 1 EVERY 28 DAYS
     Route: 041
  10. ABRAXANE [Suspect]
     Active Substance: PACLITAXEL
     Dosage: 250.24 MILLIGRAM; CYCLICAL
     Route: 041
  11. ABRAXANE [Suspect]
     Active Substance: PACLITAXEL
     Dosage: 196 MILLIGRAM; CYCLICAL
     Route: 041
  12. DURVALUMAB [Suspect]
     Active Substance: DURVALUMAB
     Indication: Pancreatic carcinoma
     Dosage: 1500 MG, UNK, 1 EVERY 4 WEEKS, INTRAVENOUS DRIP
     Route: 041
  13. DURVALUMAB [Suspect]
     Active Substance: DURVALUMAB
     Indication: Non-small cell lung cancer
     Dosage: 1500 MG, UNK, 1 EVERY 4 WEEK, INTRAVENOUS DRIP
     Route: 041
  14. DURVALUMAB [Suspect]
     Active Substance: DURVALUMAB
     Dosage: 1500 MILLIGRAM; CYCLICAL
     Route: 041
  15. DURVALUMAB [Suspect]
     Active Substance: DURVALUMAB
     Dosage: UNK
     Route: 042
  16. TREMELIMUMAB [Suspect]
     Active Substance: TREMELIMUMAB
     Indication: Pancreatic carcinoma
     Dosage: 75 MG, UNK, 1 EVERY 4 WEEKS, INTRAVENOUS DRIP
     Route: 041
  17. TREMELIMUMAB [Suspect]
     Active Substance: TREMELIMUMAB
     Dosage: 75 MILLIGRAM; CYCLICAL
     Route: 041
  18. DURVALUMAB [Suspect]
     Active Substance: DURVALUMAB
     Indication: Pancreatic carcinoma
     Dosage: 1500 MILLIGRAM; 1 EVERY 4 WEEKS
     Route: 042
  19. DURVALUMAB [Suspect]
     Active Substance: DURVALUMAB
     Indication: Non-small cell lung cancer
  20. ASPIRIN [Concomitant]
     Active Substance: ASPIRIN
     Indication: Anticoagulant therapy
     Dosage: UNK
     Route: 065
  21. CELECOXIB [Concomitant]
     Active Substance: CELECOXIB
     Indication: Back pain
     Dosage: UNK
     Route: 065
  22. HYDROCORTISONE [Concomitant]
     Active Substance: HYDROCORTISONE\HYDROCORTISONE ACETATE
     Indication: Hypothyroidism
     Dosage: UNK
     Route: 065
  23. LEVAQUIN [Concomitant]
     Active Substance: LEVOFLOXACIN
     Indication: Product used for unknown indication
     Dosage: UNK
     Route: 048
  24. LEVOTHYROXINE SODIUM [Concomitant]
     Active Substance: LEVOTHYROXINE SODIUM
     Indication: Hypothyroidism
     Dosage: UNK
     Route: 065
  25. LOPERAMIDE [Concomitant]
     Active Substance: LOPERAMIDE
     Indication: Prophylaxis against diarrhoea
     Dosage: UNK
     Route: 065
  26. LOPERAMIDE [Concomitant]
     Active Substance: LOPERAMIDE
     Indication: Diarrhoea
  27. ONDANSETRON HYDROCHLORIDE [Concomitant]
     Active Substance: ONDANSETRON HYDROCHLORIDE
     Indication: Nausea
     Dosage: UNK
     Route: 065
  28. PIPERACILLIN SODIUM [Concomitant]
     Active Substance: PIPERACILLIN SODIUM
     Indication: Product used for unknown indication
     Dosage: UNK
     Route: 041
  29. POTASSIUM CHLORIDE [Concomitant]
     Active Substance: POTASSIUM CHLORIDE
     Indication: Hypokalaemia
     Dosage: UNK
     Route: 065
  30. POTASSIUM CHLORIDE [Concomitant]
     Active Substance: POTASSIUM CHLORIDE
     Indication: Blood potassium decreased
  31. PREDNISONE [Concomitant]
     Active Substance: PREDNISONE
     Indication: Inflammation
     Dosage: UNK
     Route: 048
  32. PREGABALIN [Concomitant]
     Active Substance: PREGABALIN
     Indication: Back pain
     Dosage: UNK
     Route: 065
  33. PROCHLORPERAZINE [Concomitant]
     Active Substance: PROCHLORPERAZINE
     Indication: Nausea
     Dosage: UNK
     Route: 065
  34. SOLU-CORTEF [Concomitant]
     Active Substance: HYDROCORTISONE SODIUM SUCCINATE
     Indication: Product used for unknown indication
     Dosage: UNK
     Route: 041
  35. HYDROMORPHONE [Concomitant]
     Active Substance: HYDROMORPHONE
     Indication: Back pain
     Route: 065

REACTIONS (3)
  - Hypotension [Recovered/Resolved]
  - Sepsis [Recovered/Resolved]
  - Oedema peripheral [Recovered/Resolved]
